FAERS Safety Report 11668428 (Version 1)
Quarter: 2015Q4

REPORT INFORMATION
  Report Type: Spontaneous
  Country: US (occurrence: US)
  Receive Date: 20151027
  Receipt Date: 20151027
  Transmission Date: 20160304
  Serious: No
  Sender: FDA-Public Use
  Company Number: US-ELI_LILLY_AND_COMPANY-US201003005474

PATIENT
  Age: 74 Year
  Sex: Female

DRUGS (1)
  1. FORTEO [Suspect]
     Active Substance: TERIPARATIDE
     Indication: OSTEOPOROSIS
     Dates: end: 20100305

REACTIONS (11)
  - Hypersomnia [Unknown]
  - Dizziness [Unknown]
  - Blood pressure increased [Unknown]
  - Suicidal ideation [Unknown]
  - Heart rate increased [Unknown]
  - Headache [Unknown]
  - Rhinorrhoea [Unknown]
  - Vision blurred [Unknown]
  - Depression [Unknown]
  - Arthralgia [Unknown]
  - Asthenia [Unknown]
